FAERS Safety Report 20190030 (Version 1)
Quarter: 2021Q4

REPORT INFORMATION
  Report Type: Spontaneous
  Country: None (occurrence: A1)
  Receive Date: 20211215
  Receipt Date: 20211215
  Transmission Date: 20220304
  Serious: Yes (Other)
  Sender: FDA-Public Use
  Company Number: A1-Acella Pharmaceuticals, LLC-2123053

PATIENT
  Age: 89 Year
  Sex: Male

DRUGS (2)
  1. GABAPENTIN [Suspect]
     Active Substance: GABAPENTIN
     Indication: Herpes zoster
     Route: 048
  2. ACYCLOVIR [Suspect]
     Active Substance: ACYCLOVIR
     Route: 048

REACTIONS (4)
  - Hyperphosphataemia [Unknown]
  - Fall [Unknown]
  - Constipation [Unknown]
  - Hip fracture [Unknown]
